FAERS Safety Report 11673626 (Version 2)
Quarter: 2015Q4

REPORT INFORMATION
  Report Type: Report from Study
  Country: US (occurrence: US)
  Receive Date: 20151028
  Receipt Date: 20151111
  Transmission Date: 20160304
  Serious: Yes (Hospitalization)
  Sender: FDA-Public Use
  Company Number: US-BIOGENIDEC-2015BI143583

PATIENT
  Age: 58 Year
  Sex: Female

DRUGS (2)
  1. ASPIRIN. [Concomitant]
     Active Substance: ASPIRIN
  2. TECFIDERA [Suspect]
     Active Substance: DIMETHYL FUMARATE
     Indication: MULTIPLE SCLEROSIS
     Route: 048
     Dates: start: 20150130

REACTIONS (4)
  - Asthenia [Unknown]
  - Muscular weakness [Unknown]
  - Pain in extremity [Unknown]
  - Procedural complication [Unknown]

NARRATIVE: CASE EVENT DATE: 201510
